FAERS Safety Report 6456763-7 (Version None)
Quarter: 2009Q4

REPORT INFORMATION
  Report Type: 
  Country: None (occurrence: None)
  Receive Date: 20091125
  Receipt Date: 20091119
  Transmission Date: 20100525
  Serious: Yes (Death)
  Sender: FDA-Public Use
  Company Number: US-SANOFI-AVENTIS-2009SA003775

PATIENT
  Age: 67 Year
  Sex: Female
  Weight: 63.49 kg

DRUGS (14)
  1. PLAVIX [Suspect]
     Route: 048
     Dates: start: 20091115, end: 20091116
  2. ROPIVACAINE [Concomitant]
     Route: 008
     Dates: start: 20091111
  3. TYLENOL (CAPLET) [Concomitant]
     Indication: HEADACHE
     Dosage: DOSE:600 UNIT(S)
     Route: 065
     Dates: end: 20091101
  4. TYLENOL (CAPLET) [Concomitant]
     Dosage: DOSE:600 UNIT(S)
     Route: 065
     Dates: end: 20091101
  5. ALBUTEROL [Concomitant]
     Dosage: DOSE:6 PUFF(S)
     Route: 055
     Dates: end: 20091101
  6. HEPARIN [Concomitant]
     Dosage: DOSE:5000 UNIT(S)
     Route: 058
     Dates: end: 20091101
  7. HYDRALAZINE HCL [Concomitant]
     Route: 065
     Dates: end: 20091101
  8. LABETALOL HCL [Concomitant]
     Dosage: PRN SYSTOLIC BLOOD PRESSURE GREATER THAN 200
     Route: 065
     Dates: end: 20091101
  9. METOPROLOL [Concomitant]
     Route: 065
     Dates: end: 20091101
  10. VERSED [Concomitant]
     Route: 065
     Dates: end: 20091101
  11. MORPHINE [Concomitant]
     Route: 065
     Dates: end: 20091101
  12. PROTONIX [Concomitant]
     Route: 065
     Dates: end: 20091101
  13. POTASSIUM CHLORIDE [Concomitant]
     Route: 065
     Dates: end: 20091101
  14. ZOCOR [Concomitant]
     Route: 065
     Dates: end: 20091101

REACTIONS (1)
  - CEREBROVASCULAR ACCIDENT [None]
